FAERS Safety Report 10693618 (Version 1)
Quarter: 2015Q1

REPORT INFORMATION
  Report Type: Spontaneous
  Country: FR (occurrence: FR)
  Receive Date: 20150106
  Receipt Date: 20150106
  Transmission Date: 20150721
  Serious: Yes (Hospitalization)
  Sender: FDA-Public Use
  Company Number: FR-009507513-1501FRA000878

PATIENT
  Age: 32 Year
  Sex: Female

DRUGS (4)
  1. DECAPEPTYL [Suspect]
     Active Substance: TRIPTORELIN ACETATE
     Indication: OVULATION INDUCTION
     Dosage: 0.2 MG, ONCE
     Route: 058
     Dates: start: 20141006, end: 20141006
  2. OROMONE [Suspect]
     Active Substance: ESTRADIOL
     Dosage: 2 MG, QD
     Route: 048
     Dates: end: 20140922
  3. ORGALUTRAN [Suspect]
     Active Substance: GANIRELIX ACETATE
     Indication: OVULATION INDUCTION
     Dosage: 1 DF, QD
     Route: 058
     Dates: start: 20141002, end: 20141006
  4. FOLLITROPIN BETA [Suspect]
     Active Substance: FOLLITROPIN
     Indication: OVULATION INDUCTION
     Dosage: 125 IU, QD
     Dates: start: 20140927, end: 20141004

REACTIONS (2)
  - Pelvic fluid collection [Recovered/Resolved]
  - Ovarian hyperstimulation syndrome [Recovered/Resolved]

NARRATIVE: CASE EVENT DATE: 201410
